FAERS Safety Report 8115324-4 (Version None)
Quarter: 2012Q1

REPORT INFORMATION
  Report Type: 
  Country: None (occurrence: None)
  Receive Date: 20120206
  Receipt Date: 20120206
  Transmission Date: 20120608
  Serious: Yes (Other)
  Sender: FDA-Public Use
  Company Number: None

PATIENT
  Age: 56 Year
  Sex: Female
  Weight: 71.667 kg

DRUGS (4)
  1. LIPITOR [Concomitant]
  2. LEVOTHYROXINE SODIUM [Concomitant]
  3. GILENYA [Suspect]
     Indication: MULTIPLE SCLEROSIS
     Dosage: 0.5 MG
     Route: 048
     Dates: start: 20110329, end: 20110614
  4. LISINOPRIL [Concomitant]

REACTIONS (2)
  - EYE OEDEMA [None]
  - RETINAL TEAR [None]
